FAERS Safety Report 9421763 (Version 1)
Quarter: 2013Q3

REPORT INFORMATION
  Report Type: Spontaneous
  Country: IT (occurrence: IT)
  Receive Date: 20130726
  Receipt Date: 20130726
  Transmission Date: 20140515
  Serious: Yes (Hospitalization, Other)
  Sender: FDA-Public Use
  Company Number: IT-ASTRAZENECA-2013SE54776

PATIENT
  Age: 20459 Day
  Sex: Female

DRUGS (4)
  1. SEROQUEL PROLONGED RELEASE [Suspect]
     Indication: PSYCHOTIC DISORDER
     Route: 048
     Dates: start: 20130626, end: 20130707
  2. SOLIAN [Concomitant]
     Dates: start: 20130626, end: 20130718
  3. DEPAKIN CHRONO [Concomitant]
     Dates: start: 20130626, end: 20130718
  4. ANSIOLIN [Concomitant]
     Route: 048

REACTIONS (3)
  - Laryngeal oedema [Recovering/Resolving]
  - Local swelling [Recovering/Resolving]
  - Oedema mouth [Recovering/Resolving]
